FAERS Safety Report 16430556 (Version 3)
Quarter: 2019Q4

REPORT INFORMATION
  Report Type: Report from Study
  Country: US (occurrence: US)
  Receive Date: 20190614
  Receipt Date: 20191129
  Transmission Date: 20200122
  Serious: Yes (Other)
  Sender: FDA-Public Use
  Company Number: US-SA-2019SA162632

PATIENT
  Age: 43 Year
  Sex: Female
  Weight: 92.5 kg

DRUGS (2)
  1. TERIFLUNOMIDE. [Suspect]
     Active Substance: TERIFLUNOMIDE
     Indication: MULTIPLE SCLEROSIS
     Dosage: 14 MG, QD
     Route: 048
     Dates: start: 20190529, end: 2019
  2. TERIFLUNOMIDE. [Suspect]
     Active Substance: TERIFLUNOMIDE
     Dosage: 14 MG QD
     Route: 048
     Dates: start: 2019, end: 20190923

REACTIONS (9)
  - Blindness unilateral [Recovered/Resolved]
  - Depressed mood [Unknown]
  - Diarrhoea [Unknown]
  - Weight increased [Unknown]
  - Menorrhagia [Unknown]
  - Acne [Unknown]
  - Multiple sclerosis relapse [Unknown]
  - Nausea [Unknown]
  - Alopecia [Recovered/Resolved]

NARRATIVE: CASE EVENT DATE: 201906
